FAERS Safety Report 9311835 (Version 1)
Quarter: 2013Q2

REPORT INFORMATION
  Report Type: Spontaneous
  Country: AR (occurrence: AR)
  Receive Date: 20130528
  Receipt Date: 20130528
  Transmission Date: 20140414
  Serious: Yes (Death)
  Sender: FDA-Public Use
  Company Number: PHHY2013AR053002

PATIENT
  Sex: Female

DRUGS (1)
  1. EXELON PATCH [Suspect]
     Indication: CEREBROVASCULAR ACCIDENT
     Dosage: 4.6 MG / 24 HOURS (5CM)
     Route: 062
     Dates: start: 201109

REACTIONS (4)
  - General physical health deterioration [Fatal]
  - Application site erythema [Unknown]
  - Application site swelling [Unknown]
  - Application site vesicles [Unknown]
